FAERS Safety Report 9100448 (Version 3)
Quarter: 2013Q4

REPORT INFORMATION
  Report Type: Report from Study
  Country: US (occurrence: US)
  Receive Date: 20130215
  Receipt Date: 20131121
  Transmission Date: 20140711
  Serious: Yes (Other)
  Sender: FDA-Public Use
  Company Number: US-EISAI INC-E7389-03530-CLI-US

PATIENT
  Age: 56 Year
  Sex: Female
  Weight: 70 kg

DRUGS (1)
  1. E7389 (BOLD) [Suspect]
     Indication: RHABDOMYOSARCOMA
     Route: 041
     Dates: start: 20121114

REACTIONS (1)
  - Lower respiratory tract infection fungal [Recovered/Resolved]
